FAERS Safety Report 7122334-2 (Version None)
Quarter: 2010Q4

REPORT INFORMATION
  Report Type: 
  Country: None (occurrence: None)
  Receive Date: 20101124
  Receipt Date: 20101014
  Transmission Date: 20110411
  Serious: Yes (Death, Life-Threatening, Other)
  Sender: FDA-Public Use
  Company Number: US-BAXTER-2009BH016690

PATIENT
  Age: 67 Year
  Sex: Female
  Weight: 76 kg

DRUGS (1)
  1. HEPARIN SODIUM INJECTION [Suspect]
     Indication: HAEMODIALYSIS
     Route: 010
     Dates: start: 20071220, end: 20071220

REACTIONS (29)
  - ABDOMINAL PAIN UPPER [None]
  - ACUTE MYOCARDIAL INFARCTION [None]
  - AGGRESSION [None]
  - ANAEMIA [None]
  - ANGINA UNSTABLE [None]
  - ATRIAL FIBRILLATION [None]
  - BLEEDING TIME PROLONGED [None]
  - BUNDLE BRANCH BLOCK LEFT [None]
  - CARDIAC MURMUR [None]
  - CARDIO-RESPIRATORY ARREST [None]
  - CHEST PAIN [None]
  - CONVULSION [None]
  - DIABETES MELLITUS [None]
  - DYSARTHRIA [None]
  - DYSPNOEA [None]
  - FALL [None]
  - HYPERHIDROSIS [None]
  - HYPOTENSION [None]
  - INCONTINENCE [None]
  - JAUNDICE [None]
  - NAUSEA [None]
  - PERICARDIAL RUB [None]
  - PLATELET COUNT DECREASED [None]
  - RENAL FAILURE [None]
  - UNRESPONSIVE TO STIMULI [None]
  - VAGINAL HAEMORRHAGE [None]
  - VASCULAR ANOMALY [None]
  - VIITH NERVE PARALYSIS [None]
  - VOMITING [None]
